FAERS Safety Report 18988583 (Version 7)
Quarter: 2022Q2

REPORT INFORMATION
  Report Type: Spontaneous
  Country: US (occurrence: US)
  Receive Date: 20210309
  Receipt Date: 20220413
  Transmission Date: 20220720
  Serious: Yes (Hospitalization, Other)
  Sender: FDA-Public Use
  Company Number: US-PFIZER INC-2021233772

PATIENT
  Age: 55 Year
  Sex: Female
  Weight: 74.83 kg

DRUGS (5)
  1. GEODON [Suspect]
     Active Substance: ZIPRASIDONE HYDROCHLORIDE\ZIPRASIDONE MESYLATE
     Indication: Drug dependence
     Dosage: 160 MG (80MG TWO PILLS A DAY BY MOUTH AT BED TIME)
     Route: 048
     Dates: start: 1995
  2. GEODON [Suspect]
     Active Substance: ZIPRASIDONE HYDROCHLORIDE\ZIPRASIDONE MESYLATE
     Dosage: 40 MG (EVERY NIGHT AT BED TIME)
  3. ABILIFY [Concomitant]
     Active Substance: ARIPIPRAZOLE
     Dosage: 30 MG, 1X/DAY (AT NIGHT)
     Route: 048
  4. LEVOTHYROXINE [Concomitant]
     Active Substance: LEVOTHYROXINE
     Dosage: 75 UG, 1X/DAY (IN THE MORNING)
     Route: 048
  5. LORAZEPAM [Concomitant]
     Active Substance: LORAZEPAM
     Dosage: 1 MG, 2X/DAY (TWICE A DAY AS NEEDED)
     Route: 048

REACTIONS (29)
  - COVID-19 [Unknown]
  - Suicidal ideation [Not Recovered/Not Resolved]
  - Illness [Unknown]
  - Acute kidney injury [Unknown]
  - Multiple fractures [Unknown]
  - Schizophrenia [Unknown]
  - Hepatic failure [Unknown]
  - Haemorrhage [Unknown]
  - Clavicle fracture [Unknown]
  - Lower limb fracture [Unknown]
  - Foot fracture [Unknown]
  - Off label use [Unknown]
  - Drug ineffective for unapproved indication [Unknown]
  - Head injury [Unknown]
  - Mental disability [Not Recovered/Not Resolved]
  - Memory impairment [Not Recovered/Not Resolved]
  - Personality disorder [Unknown]
  - Illness [Unknown]
  - Anxiety [Unknown]
  - Weight decreased [Unknown]
  - Alopecia [Unknown]
  - Dyspnoea [Unknown]
  - Bone disorder [Unknown]
  - Sexual dysfunction [Unknown]
  - Paranoia [Unknown]
  - Loss of personal independence in daily activities [Unknown]
  - Pain [Unknown]
  - Grief reaction [Unknown]
  - Intentional product misuse [Unknown]

NARRATIVE: CASE EVENT DATE: 20210101
